FAERS Safety Report 6167310-1 (Version None)
Quarter: 2009Q2

REPORT INFORMATION
  Report Type: 
  Country: None (occurrence: None)
  Receive Date: 20090424
  Receipt Date: 20090417
  Transmission Date: 20091009
  Serious: No
  Sender: FDA-Public Use
  Company Number: US-ELI_LILLY_AND_COMPANY-US200903006161

PATIENT
  Sex: Female

DRUGS (5)
  1. HUMALOG [Suspect]
     Dosage: UNK, UNK
     Dates: start: 20081117
  2. HUMALOG [Suspect]
     Dosage: UNK, AS NEEDED
     Dates: start: 20090301
  3. DIFLUCAN [Concomitant]
     Indication: FUNGAL INFECTION
     Dates: start: 20090201
  4. LEVOXYL [Concomitant]
  5. LANTUS [Concomitant]
     Dosage: 19 U, DAILY (1/D)

REACTIONS (8)
  - BLOOD GLUCOSE DECREASED [None]
  - BLOOD GLUCOSE INCREASED [None]
  - DRUG DISPENSING ERROR [None]
  - FUNGAL INFECTION [None]
  - HUNGER [None]
  - INCORRECT DRUG DOSAGE FORM ADMINISTERED [None]
  - IRRITABILITY [None]
  - PAIN [None]
